FAERS Safety Report 9411259 (Version 2)
Quarter: 2013Q3

REPORT INFORMATION
  Report Type: Spontaneous
  Country: US (occurrence: US)
  Receive Date: 20130722
  Receipt Date: 20130825
  Transmission Date: 20140515
  Serious: No
  Sender: FDA-Public Use
  Company Number: US-009507513-1307USA011067

PATIENT
  Age: 24 Year
  Sex: Female
  Weight: 82.86 kg

DRUGS (1)
  1. NEXPLANON [Suspect]
     Indication: CONTRACEPTION
     Dosage: ONCE/THREE YEARS
     Route: 059
     Dates: start: 20130702

REACTIONS (1)
  - Implant site pruritus [Recovered/Resolved]
